FAERS Safety Report 9072005 (Version 2)
Quarter: 2013Q2

REPORT INFORMATION
  Report Type: Spontaneous
  Country: US (occurrence: US)
  Receive Date: 20130129
  Receipt Date: 20130408
  Transmission Date: 20140414
  Serious: Yes (Hospitalization)
  Sender: FDA-Public Use
  Company Number: US-BAYER-2013-011406

PATIENT
  Age: 21 Year
  Sex: Female
  Weight: 68 kg

DRUGS (11)
  1. YAZ [Suspect]
     Indication: ACNE
     Dosage: UNK
     Route: 048
     Dates: start: 2008
  2. NUBAIN [Concomitant]
     Indication: PAIN
     Dosage: 10 MG EVERY 6 HOURS PRN
     Dates: start: 20110512
  3. PITOCIN [Concomitant]
     Indication: LABOUR INDUCTION
     Dosage: UNK
     Route: 042
     Dates: start: 20110513
  4. FENTANYL [Concomitant]
     Dosage: UNK
     Route: 008
     Dates: start: 20110513
  5. SENOKOT [SENNA ALEXANDRINA] [Concomitant]
     Indication: CONSTIPATION
     Dosage: UNK
     Route: 048
     Dates: start: 20110513
  6. TYLENOL [PARACETAMOL] [Concomitant]
     Dosage: 500 MG EVERY 4 HOURS PRN
     Route: 048
     Dates: start: 20110513
  7. PERCOCET [Concomitant]
     Indication: PAIN
     Dosage: UNK
     Route: 048
     Dates: start: 20110513
  8. IBUPROFEN [Concomitant]
     Indication: PAIN
     Dosage: 600 MG EVERY 6 HOURS PRN
     Route: 048
     Dates: start: 20110513
  9. DERMOPLAST [BENZETHON,BENZOC,BENZOXIQUINE,ISOPROPAN,MENTHOL,METHYL [Concomitant]
     Indication: PRURITUS
     Route: 061
  10. CALCIUM CARBONATE [Concomitant]
     Indication: GASTRIC PH DECREASED
     Dosage: 500 MG, 2, PRN TWICE PER DAY
     Route: 048
     Dates: start: 20110513
  11. HERBAL SUPPLEMENT [Concomitant]

REACTIONS (4)
  - Gallbladder disorder [None]
  - Pain [None]
  - Pain [None]
  - Cholecystitis chronic [None]
